FAERS Safety Report 6684440-6 (Version None)
Quarter: 2010Q2

REPORT INFORMATION
  Report Type: 
  Country: None (occurrence: None)
  Receive Date: 20100416
  Receipt Date: 20100408
  Transmission Date: 20101027
  Serious: Yes (Other)
  Sender: FDA-Public Use
  Company Number: US-RB-006578-10

PATIENT
  Sex: Male

DRUGS (3)
  1. SUBOXONE [Suspect]
     Route: 060
     Dates: start: 20070101
  2. AMBIEN [Suspect]
     Indication: INSOMNIA
     Dosage: DOSING DETAILS UNKNOWN
     Route: 048
     Dates: start: 20100101, end: 20100101
  3. BENADRYL [Suspect]
     Indication: INSOMNIA
     Dosage: DOSING DETAILS UNKNOWN
     Route: 048

REACTIONS (5)
  - DECREASED APPETITE [None]
  - DRUG ABUSE [None]
  - EUPHORIC MOOD [None]
  - HALLUCINATION [None]
  - INSOMNIA [None]
